FAERS Safety Report 12445278 (Version 1)
Quarter: 2016Q2

REPORT INFORMATION
  Report Type: Spontaneous
  Country: JP (occurrence: JP)
  Receive Date: 20160607
  Receipt Date: 20160607
  Transmission Date: 20160815
  Serious: Yes (Hospitalization)
  Sender: FDA-Public Use
  Company Number: JP-ALLERGAN-1659153US

PATIENT
  Age: 2 Year
  Sex: Male
  Weight: 9.6 kg

DRUGS (2)
  1. HYDROCORTISONE UNK [Suspect]
     Active Substance: HYDROCORTISONE
     Indication: 21-HYDROXYLASE DEFICIENCY
  2. FLUDROCORTISONE [Suspect]
     Active Substance: FLUDROCORTISONE
     Indication: 21-HYDROXYLASE DEFICIENCY

REACTIONS (3)
  - Hypercalciuria [None]
  - Calculus urethral [Recovered/Resolved]
  - Hydronephrosis [Recovered/Resolved]
